FAERS Safety Report 4411079-5 (Version None)
Quarter: 2004Q3

REPORT INFORMATION
  Report Type: 
  Country: None (occurrence: None)
  Receive Date: 20040726
  Receipt Date: 20040708
  Transmission Date: 20050211
  Serious: Yes (Other)
  Sender: FDA-Public Use
  Company Number: 201167

PATIENT
  Age: 52 Year
  Sex: Male

DRUGS (3)
  1. AVONEX [Suspect]
     Indication: MULTIPLE SCLEROSIS
     Dosage: 30 MCG QW IM
     Route: 030
     Dates: start: 20040521, end: 20040101
  2. VIOXX [Concomitant]
  3. SOLU-MEDROL [Concomitant]

REACTIONS (1)
  - INTESTINAL HAEMORRHAGE [None]
